FAERS Safety Report 10921531 (Version 1)
Quarter: 2015Q1

REPORT INFORMATION
  Report Type: Spontaneous
  Country: ES (occurrence: None)
  Receive Date: 20150312
  Receipt Date: 20150312
  Transmission Date: 20150721
  Serious: Yes (Hospitalization)
  Sender: FDA-Public Use
  Company Number: 2273151

PATIENT
  Age: 59 Year

DRUGS (4)
  1. XELODA [Suspect]
     Active Substance: CAPECITABINE
     Indication: COLON CANCER
     Dates: start: 20130416
  2. BEVACIZUMAB [Suspect]
     Active Substance: BEVACIZUMAB
     Indication: COLON CANCER
     Dates: start: 20130416
  3. OXALIPLATIN. [Suspect]
     Active Substance: OXALIPLATIN
     Indication: COLON CANCER
     Dates: start: 20130416
  4. RALTITREXED DISODIUM [Suspect]
     Active Substance: RALTITREXED
     Indication: COLON CANCER
     Dates: start: 20130523

REACTIONS (9)
  - Haemoglobin decreased [None]
  - Diarrhoea [None]
  - Mucosal inflammation [None]
  - Neutropenia [None]
  - Platelet count decreased [None]
  - Pyrexia [None]
  - Blood lactate dehydrogenase increased [None]
  - Asthenia [None]
  - Gamma-glutamyltransferase increased [None]

NARRATIVE: CASE EVENT DATE: 20130423
